FAERS Safety Report 5837653-7 (Version None)
Quarter: 2008Q3

REPORT INFORMATION
  Report Type: 
  Country: None (occurrence: None)
  Receive Date: 20080807
  Receipt Date: 20080731
  Transmission Date: 20090109
  Serious: Yes (Hospitalization, Other)
  Sender: FDA-Public Use
  Company Number: PHHY2008BR16662

PATIENT
  Sex: Male

DRUGS (2)
  1. FORASEQ [Suspect]
     Indication: EMPHYSEMA
     Dosage: UNK
     Dates: start: 20071101
  2. DRUG THERAPY NOS [Suspect]

REACTIONS (7)
  - ANAESTHESIA PROCEDURE [None]
  - ASTHENIA [None]
  - BRONCHOPNEUMONIA [None]
  - FALL [None]
  - LOSS OF CONSCIOUSNESS [None]
  - RIB FRACTURE [None]
  - SKIN NEOPLASM EXCISION [None]
